FAERS Safety Report 10209021 (Version 1)
Quarter: 2014Q2

REPORT INFORMATION
  Report Type: Spontaneous
  Country: GB (occurrence: GB)
  Receive Date: 20140530
  Receipt Date: 20140530
  Transmission Date: 20141212
  Serious: Yes (Death, Other)
  Sender: FDA-Public Use
  Company Number: GB-BRISTOL-MYERS SQUIBB COMPANY-20786224

PATIENT
  Age: 75 Year
  Sex: Female

DRUGS (1)
  1. ELIQUIS [Suspect]
     Indication: THROMBOSIS PROPHYLAXIS
     Route: 048

REACTIONS (8)
  - Cardiac arrest [Fatal]
  - Deep vein thrombosis postoperative [Not Recovered/Not Resolved]
  - Dyspnoea [Not Recovered/Not Resolved]
  - Pulmonary embolism [Not Recovered/Not Resolved]
  - Atrial fibrillation [Not Recovered/Not Resolved]
  - Peripheral swelling [Not Recovered/Not Resolved]
  - Treatment failure [Unknown]
  - Oxygen saturation decreased [Not Recovered/Not Resolved]
